FAERS Safety Report 8481878-1 (Version None)
Quarter: 2012Q3

REPORT INFORMATION
  Report Type: 
  Country: None (occurrence: None)
  Receive Date: 20120702
  Receipt Date: 20120621
  Transmission Date: 20120928
  Serious: Yes (Other)
  Sender: FDA-Public Use
  Company Number: US-COVIDIEN/TYCO HEALTHCARE/MALLINCKRODT-T201202498

PATIENT
  Sex: Female

DRUGS (1)
  1. OPTIRAY 160 [Suspect]
     Indication: ANGIOGRAM
     Dosage: 100 ML, SINGLE
     Route: 042
     Dates: start: 20120607, end: 20120607

REACTIONS (3)
  - LARYNGOSPASM [None]
  - DYSPHAGIA [None]
  - THROAT TIGHTNESS [None]
